FAERS Safety Report 5725049-8 (Version None)
Quarter: 2008Q2

REPORT INFORMATION
  Report Type: 
  Country: None (occurrence: None)
  Receive Date: 20080501
  Receipt Date: 20080421
  Transmission Date: 20081010
  Serious: Yes (Death, Other)
  Sender: FDA-Public Use
  Company Number: GB-ELI_LILLY_AND_COMPANY-GB200710003425

PATIENT
  Sex: Female

DRUGS (10)
  1. CYMBALTA [Suspect]
     Indication: SCHIZOPHRENIA
     Dosage: 30 MG, UNKNOWN
     Route: 065
     Dates: start: 20070101
  2. AMITRIPTLINE HCL [Concomitant]
     Indication: PAIN
     Dosage: 20 MG, UNKNOWN
     Route: 065
  3. AMITRIPTLINE HCL [Concomitant]
     Dosage: 10 MG, UNKNOWN
     Route: 065
  4. DEPIXOL [Concomitant]
     Dosage: 50 MG, WEEKLY (1/W)
     Route: 030
     Dates: end: 20070701
  5. DIAZEPAM [Concomitant]
     Dosage: 5 MG, UNKNOWN
     Route: 065
  6. ANADIN [Concomitant]
     Dosage: 6-8 TABLETS, DAILY (1/D)
     Route: 065
  7. QUETIAPINE [Concomitant]
     Dosage: 25 MG, EACH EVENING
     Route: 065
  8. LATANOPROST [Concomitant]
     Indication: GLAUCOMA
     Dosage: UNK, UNKNOWN
     Route: 065
  9. GABAPENTIN [Concomitant]
     Dosage: UNK, UNKNOWN
     Route: 065
  10. CHLORPHENIRAMINE MALEATE [Concomitant]

REACTIONS (2)
  - CYANOSIS [None]
  - DEATH [None]
